FAERS Safety Report 21786725 (Version 2)
Quarter: 2023Q1

REPORT INFORMATION
  Report Type: Spontaneous
  Country: US (occurrence: US)
  Receive Date: 20221228
  Receipt Date: 20230103
  Transmission Date: 20230417
  Serious: Yes (Hospitalization, Other)
  Sender: FDA-Public Use
  Company Number: US-RECKITT BENCKISER HEALTHCARE INT LIMITED-RB-106120-2022

PATIENT
  Age: 7 Year
  Sex: Female

DRUGS (1)
  1. MUCINEX INSTASOOTHE SORE THROAT PLUS PAIN RELIEF [Suspect]
     Active Substance: BENZOCAINE\MENTHOL
     Indication: Upper respiratory tract infection
     Dosage: UNK
     Route: 048
     Dates: start: 20221210, end: 20221210

REACTIONS (4)
  - Methaemoglobinaemia [Recovered/Resolved]
  - Respiration abnormal [Recovered/Resolved]
  - Product use in unapproved indication [Recovered/Resolved]
  - Product label issue [Unknown]

NARRATIVE: CASE EVENT DATE: 20221210
